FAERS Safety Report 16311403 (Version 2)
Quarter: 2019Q2

REPORT INFORMATION
  Report Type: Other
  Country: DE (occurrence: DE)
  Receive Date: 20190514
  Receipt Date: 20190628
  Transmission Date: 20190711
  Serious: Yes (Death)
  Sender: FDA-Public Use
  Company Number: DE-GE HEALTHCARE LIFE SCIENCES-2019CSU002452

PATIENT

DRUGS (11)
  1. FINASTERID [Concomitant]
     Active Substance: FINASTERIDE
     Dosage: 5 MG, QD
  2. ACCUPAQUE [Suspect]
     Active Substance: IOHEXOL
     Indication: DIAGNOSTIC PROCEDURE
     Dosage: 90 ML, SINGLE
     Route: 065
  3. ACCUPAQUE [Suspect]
     Active Substance: IOHEXOL
     Indication: PROSTATE CANCER
  4. GALANTAMIN [Concomitant]
     Active Substance: GALANTAMINE
     Dosage: 16 MG, QD
  5. METOPROLOL. [Concomitant]
     Active Substance: METOPROLOL
     Dosage: 47.5 MG, QD
  6. ATORVASTATIN [Concomitant]
     Active Substance: ATORVASTATIN
     Dosage: 20 ?G, UNK
  7. DORZO VISION [Concomitant]
     Active Substance: DORZOLAMIDE HYDROCHLORIDE
     Dosage: 2 MUMOL/24 HR, 2 DF DOSAGE FORM EVERY DAYS
  8. MARCUMAR [Concomitant]
     Active Substance: PHENPROCOUMON
  9. L-THYROXIN [Concomitant]
     Active Substance: LEVOTHYROXINE SODIUM
     Dosage: 250 ?G, QD
  10. MAGNESIUM [Concomitant]
     Active Substance: MAGNESIUM
     Dosage: 25 MG, QD
  11. CEC [Concomitant]
     Dosage: 1500 MG, QD

REACTIONS (6)
  - Bacterial disease carrier [Fatal]
  - Dementia [Fatal]
  - Subileus [Fatal]
  - Delirium [Fatal]
  - Renal failure [Fatal]
  - Pneumonia aspiration [Fatal]

NARRATIVE: CASE EVENT DATE: 20190202
